FAERS Safety Report 9424034 (Version 2)
Quarter: 2013Q3

REPORT INFORMATION
  Report Type: Spontaneous
  Country: PT (occurrence: PT)
  Receive Date: 20130729
  Receipt Date: 20130805
  Transmission Date: 20140515
  Serious: Yes (Hospitalization)
  Sender: FDA-Public Use
  Company Number: PHHY2013PT077317

PATIENT
  Age: 41 Year
  Sex: Female

DRUGS (4)
  1. VALPROIC ACID [Suspect]
     Indication: MANIA
     Dosage: 500 MG, DAILY
  2. VALPROIC ACID [Interacting]
     Dosage: 1000 MG, DAILY
  3. RISPERIDONE [Interacting]
     Indication: MANIA
     Dosage: 2 MG, DAILY
  4. RISPERIDONE [Interacting]
     Dosage: 4 MG, DAILY

REACTIONS (6)
  - Toxic encephalopathy [Recovered/Resolved]
  - Hyperammonaemia [Recovered/Resolved]
  - Psychomotor retardation [Recovered/Resolved]
  - Dysarthria [Recovered/Resolved]
  - Ataxia [Recovered/Resolved]
  - Drug interaction [Unknown]
